FAERS Safety Report 17658271 (Version 2)
Quarter: 2020Q2

REPORT INFORMATION
  Report Type: Spontaneous
  Country: JP (occurrence: JP)
  Receive Date: 20200412
  Receipt Date: 20200428
  Transmission Date: 20200713
  Serious: Yes (Death, Hospitalization, Other)
  Sender: FDA-Public Use
  Company Number: JP-AMGEN-JPNSP2020056507

PATIENT
  Age: 90 Year
  Sex: Female
  Weight: 50 kg

DRUGS (6)
  1. FOSRENOL [Concomitant]
     Active Substance: LANTHANUM CARBONATE
     Dosage: 750 MG, EVERYDAY
     Route: 048
  2. PARSABIV [Suspect]
     Active Substance: ETELCALCETIDE HYDROCHLORIDE
     Indication: HYPERPARATHYROIDISM SECONDARY
     Dosage: UNK
     Route: 010
  3. REGPARA [Suspect]
     Active Substance: CINACALCET HYDROCHLORIDE
     Indication: HYPERPARATHYROIDISM SECONDARY
     Dosage: 12.5 MG, EVERYDAY
     Route: 048
  4. NESP [Concomitant]
     Active Substance: DARBEPOETIN ALFA
     Indication: PRODUCT USED FOR UNKNOWN INDICATION
     Dosage: 20 UG, QW
     Route: 065
  5. ALFAROL [Concomitant]
     Active Substance: ALFACALCIDOL
     Indication: HYPERPARATHYROIDISM SECONDARY
     Dosage: 0.25 UG, EVERYDAY
     Route: 048
  6. PRECIPITATED CALCIUM CARBONATE [Concomitant]
     Active Substance: CALCIUM CARBONATE
     Dosage: 1000 MG, EVERYDAY
     Route: 065

REACTIONS (3)
  - Femur fracture [Fatal]
  - Decreased appetite [Unknown]
  - Anaemia [Unknown]

NARRATIVE: CASE EVENT DATE: 20200206
